FAERS Safety Report 8087604-2 (Version None)
Quarter: 2012Q1

REPORT INFORMATION
  Report Type: 
  Country: None (occurrence: None)
  Receive Date: 20120128
  Receipt Date: 20110525
  Transmission Date: 20120608
  Serious: No
  Sender: FDA-Public Use
  Company Number: US-ABBOTT-11P-163-0728569-00

PATIENT
  Age: 38 Year
  Sex: Male

DRUGS (7)
  1. HUMIRA [Suspect]
  2. GABAPENTIN [Concomitant]
     Indication: PAIN
  3. HUMIRA [Suspect]
     Indication: ANKYLOSING SPONDYLITIS
     Dates: start: 20100601
  4. GABAPENTIN [Concomitant]
     Indication: ANKYLOSING SPONDYLITIS
  5. SULFASALAZINE [Concomitant]
     Indication: ANKYLOSING SPONDYLITIS
  6. LOSARTANE [Concomitant]
     Indication: HYPERTENSION
  7. OXYCODONE HCL [Concomitant]
     Indication: PAIN
     Dosage: USUALLY BEFORE BED- AS NEEDED

REACTIONS (5)
  - DRUG INEFFECTIVE [None]
  - OEDEMA PERIPHERAL [None]
  - BONE PAIN [None]
  - NODULE [None]
  - ARTHRALGIA [None]
